FAERS Safety Report 13252315 (Version 1)
Quarter: 2017Q1

REPORT INFORMATION
  Report Type: Spontaneous
  Country: US (occurrence: US)
  Receive Date: 20170220
  Receipt Date: 20170220
  Transmission Date: 20170428
  Serious: No
  Sender: FDA-Public Use
  Company Number: US-BAYER-2017-033590

PATIENT
  Age: 78 Year
  Sex: Female
  Weight: 74.83 kg

DRUGS (3)
  1. ALEVE [Suspect]
     Active Substance: NAPROXEN SODIUM
     Indication: PAIN
     Dosage: 2 DF, QD
     Route: 048
     Dates: start: 20170217, end: 20170219
  2. LISIPRIL [Concomitant]
     Active Substance: LISINOPRIL
     Dosage: UNK
  3. METFORMIN [Concomitant]
     Active Substance: METFORMIN HYDROCHLORIDE
     Dosage: UNK

REACTIONS (2)
  - Product use issue [Unknown]
  - Epistaxis [Recovered/Resolved]

NARRATIVE: CASE EVENT DATE: 20170217
